FAERS Safety Report 15385638 (Version 1)
Quarter: 2018Q4

REPORT INFORMATION
  Report Type: Report from Study
  Country: None (occurrence: CN)
  Receive Date: 20180914
  Receipt Date: 20180914
  Transmission Date: 20190204
  Serious: Yes (Life-Threatening, Hospitalization)
  Sender: FDA-Public Use
  Company Number: CN-X-GEN PHARMACEUTICALS, INC-2054921

PATIENT
  Age: 64 Year
  Sex: Male
  Weight: 69.7 kg

DRUGS (2)
  1. PIPERACILLIN AND TAZOBACTAM [Suspect]
     Active Substance: PIPERACILLIN SODIUM\TAZOBACTAM SODIUM
     Route: 042
     Dates: start: 20180519, end: 20180523
  2. PIPERACILLIN AND TAZOBACTAM [Suspect]
     Active Substance: PIPERACILLIN SODIUM\TAZOBACTAM SODIUM
     Route: 042
     Dates: start: 20180519, end: 20180623

REACTIONS (2)
  - Pneumonia [Recovered/Resolved]
  - Stevens-Johnson syndrome [Recovered/Resolved]
